FAERS Safety Report 4950427-4 (Version None)
Quarter: 2006Q1

REPORT INFORMATION
  Report Type: 
  Country: None (occurrence: None)
  Receive Date: 20060316
  Receipt Date: 20060302
  Transmission Date: 20060701
  Serious: Yes (Disabling, Other)
  Sender: FDA-Public Use
  Company Number: 2005_000043

PATIENT
  Age: 52 Year
  Sex: Female

DRUGS (2)
  1. DEPOCYT [Suspect]
     Indication: NON-HODGKIN'S LYMPHOMA
     Dosage: 50 MG;X1;INTH
     Route: 037
     Dates: start: 20050415, end: 20050415
  2. METHOTREXATE [Concomitant]

REACTIONS (6)
  - ABASIA [None]
  - COORDINATION ABNORMAL [None]
  - MYELOPATHY [None]
  - PARAPARESIS [None]
  - PYRAMIDAL TRACT SYNDROME [None]
  - SENSORY LOSS [None]
